FAERS Safety Report 6805356-8 (Version None)
Quarter: 2010Q2

REPORT INFORMATION
  Report Type: 
  Country: None (occurrence: None)
  Receive Date: 20100628
  Receipt Date: 20071102
  Transmission Date: 20101027
  Serious: No
  Sender: FDA-Public Use
  Company Number: US-PFIZER INC-2007093270

PATIENT
  Sex: Male
  Weight: 193 kg

DRUGS (5)
  1. GEODON [Suspect]
     Indication: BIPOLAR DISORDER
     Dates: start: 20070901
  2. CELEXA [Concomitant]
  3. PROTONIX [Concomitant]
  4. WELLBUTRIN [Concomitant]
  5. LAMICTAL [Concomitant]

REACTIONS (5)
  - AKATHISIA [None]
  - DIZZINESS [None]
  - LETHARGY [None]
  - NAUSEA [None]
  - PYREXIA [None]
